FAERS Safety Report 19845456 (Version 1)
Quarter: 2021Q3

REPORT INFORMATION
  Report Type: Spontaneous
  Country: US (occurrence: US)
  Receive Date: 20210915
  Receipt Date: 20210915
  Transmission Date: 20211014
  Serious: No
  Sender: FDA-Public Use
  Company Number: None

PATIENT
  Age: 65 Year
  Sex: Male
  Weight: 68.04 kg

DRUGS (1)
  1. SULFAMETHIZOLE/TRIMETHOPRIM [Suspect]
     Active Substance: SULFAMETHIZOLE\TRIMETHOPRIM
     Indication: URINARY TRACT INFECTION
     Dosage: ?          OTHER DOSE:400/80 MG;?
     Route: 048
     Dates: start: 20210610, end: 20210618

REACTIONS (5)
  - Type IV hypersensitivity reaction [None]
  - Tachycardia [None]
  - Thrombocytopenia [None]
  - Erythema multiforme [None]
  - Drug hypersensitivity [None]

NARRATIVE: CASE EVENT DATE: 20210618
